FAERS Safety Report 7414653-7 (Version None)
Quarter: 2011Q2

REPORT INFORMATION
  Report Type: 
  Country: None (occurrence: None)
  Receive Date: 20110414
  Receipt Date: 20110413
  Transmission Date: 20111010
  Serious: Yes (Other)
  Sender: FDA-Public Use
  Company Number: CN-PFIZER INC-2011080738

PATIENT
  Sex: Male

DRUGS (2)
  1. CARDURA [Suspect]
     Indication: BENIGN PROSTATIC HYPERPLASIA
     Dosage: UNK
     Route: 048
     Dates: start: 20110406
  2. CONCOR [Concomitant]
     Indication: HYPERTENSION

REACTIONS (3)
  - VISION BLURRED [None]
  - BLOOD PRESSURE DECREASED [None]
  - DIZZINESS [None]
